FAERS Safety Report 9931740 (Version 3)
Quarter: 2014Q1

REPORT INFORMATION
  Report Type: Spontaneous
  Country: JP (occurrence: JP)
  Receive Date: 20140228
  Receipt Date: 20140308
  Transmission Date: 20141002
  Serious: Yes (Death, Hospitalization)
  Sender: FDA-Public Use
  Company Number: JP-ROCHE-1313830

PATIENT
  Age: 67 Year
  Sex: Female
  Weight: 44 kg

DRUGS (17)
  1. PERJETA [Suspect]
     Indication: BREAST CANCER
     Route: 041
     Dates: start: 20131031, end: 20131031
  2. HERCEPTIN [Suspect]
     Indication: BREAST CANCER
     Dosage: DOSAGE IS UNCERTAIN
     Route: 042
     Dates: start: 20081112, end: 200912
  3. HERCEPTIN [Suspect]
     Indication: BREAST CANCER
     Dosage: DOSAGE IS UNCERTAIN
     Route: 042
     Dates: start: 20091216, end: 201211
  4. HERCEPTIN [Suspect]
     Indication: BREAST CANCER
     Dosage: DOSAGE IS UNCERTAIN
     Route: 042
     Dates: start: 201301, end: 201310
  5. HERCEPTIN [Suspect]
     Indication: BREAST CANCER
     Dosage: DOSAGE IS UNCERTAIN
     Route: 042
     Dates: start: 20131031, end: 20131031
  6. ONETAXOTERE [Suspect]
     Indication: BREAST CANCER
     Dosage: SINGLE DOSE ADMINISTRATION
     Route: 041
     Dates: start: 20131031, end: 20131031
  7. GEMZAR [Concomitant]
     Indication: BREAST CANCER
     Route: 041
     Dates: start: 201301, end: 201310
  8. KYTRIL [Concomitant]
     Indication: BREAST CANCER
     Dosage: SINGLE DOSE ADMINISTRATION
     Route: 041
     Dates: start: 20131031, end: 20131031
  9. DECADRON [Concomitant]
     Indication: BREAST CANCER
     Dosage: SINGLE DOSE ADMINISTRATION
     Route: 041
     Dates: start: 20131031, end: 20131031
  10. LASIX [Concomitant]
     Indication: OEDEMA
     Route: 065
     Dates: start: 201308
  11. ZOMETA [Concomitant]
     Indication: BREAST CANCER
     Route: 065
     Dates: start: 20081112, end: 200912
  12. FEMARA [Concomitant]
     Indication: BREAST CANCER
     Route: 065
     Dates: start: 20081112, end: 200912
  13. EXEMESTANE [Concomitant]
     Indication: BREAST CANCER
     Route: 065
     Dates: start: 20081112, end: 200912
  14. GIMERACIL/OTERACIL POTASSIUM/TEGAFUR [Concomitant]
     Indication: BREAST CANCER
     Route: 065
     Dates: start: 20091216, end: 201211
  15. OXYCONTIN [Concomitant]
     Indication: BREAST CANCER
     Route: 065
     Dates: end: 2012
  16. LOXONIN [Concomitant]
     Indication: BREAST CANCER
     Route: 065
     Dates: end: 2011
  17. FERROMIA [Concomitant]
     Indication: ANAEMIA
     Route: 065
     Dates: end: 201308

REACTIONS (4)
  - Interstitial lung disease [Fatal]
  - Breast cancer [Fatal]
  - Disseminated intravascular coagulation [Fatal]
  - Pneumonia [Fatal]
